FAERS Safety Report 15925688 (Version 1)
Quarter: 2019Q1

REPORT INFORMATION
  Report Type: Report from Study
  Country: None (occurrence: BR)
  Receive Date: 20190206
  Receipt Date: 20190206
  Transmission Date: 20190417
  Serious: Yes (Other)
  Sender: FDA-Public Use
  Company Number: BR-ABBVIE-19K-020-2647856-00

PATIENT
  Sex: Female
  Weight: 65 kg

DRUGS (1)
  1. HUMIRA [Suspect]
     Active Substance: ADALIMUMAB
     Indication: RHEUMATOID ARTHRITIS
     Route: 058
     Dates: start: 20110104, end: 201811

REACTIONS (10)
  - Blood cholesterol increased [Unknown]
  - Cartilage injury [Unknown]
  - Procedural pain [Recovering/Resolving]
  - Gait disturbance [Recovering/Resolving]
  - Synovial cyst [Unknown]
  - Weight decreased [Unknown]
  - Post procedural swelling [Recovering/Resolving]
  - Arthropathy [Unknown]
  - Hypothyroidism [Unknown]
  - Abdominal pain upper [Unknown]
